FAERS Safety Report 7292425-4 (Version None)
Quarter: 2011Q1

REPORT INFORMATION
  Report Type: 
  Country: None (occurrence: None)
  Receive Date: 20110215
  Receipt Date: 20110209
  Transmission Date: 20110831
  Serious: No
  Sender: FDA-Public Use
  Company Number: US-PFIZER INC-2010155996

PATIENT
  Age: 69 Year
  Sex: Female

DRUGS (2)
  1. LOPID [Suspect]
     Dosage: UNK MG, UNK
     Route: 048
  2. PROTONIX [Suspect]
     Dosage: UNK MG, UNK
     Route: 048

REACTIONS (4)
  - VOMITING [None]
  - HYPERSENSITIVITY [None]
  - NAUSEA [None]
  - URTICARIA [None]
